FAERS Safety Report 5777958-1 (Version None)
Quarter: 2008Q2

REPORT INFORMATION
  Report Type: 
  Country: None (occurrence: None)
  Receive Date: 20080618
  Receipt Date: 20080618
  Transmission Date: 20081010
  Serious: Yes (Other)
  Sender: FDA-Public Use
  Company Number: None

PATIENT
  Age: 12 Year
  Sex: Male
  Weight: 33.1126 kg

DRUGS (2)
  1. WELLBUTRIN XL [Suspect]
     Dates: start: 20080613
  2. WELLBUTRIN XL [Suspect]
     Dates: start: 20080513

REACTIONS (4)
  - ABNORMAL BEHAVIOUR [None]
  - DRUG INEFFECTIVE [None]
  - EDUCATIONAL PROBLEM [None]
  - NIGHTMARE [None]
